FAERS Safety Report 9025292 (Version 1)
Quarter: 2013Q1

REPORT INFORMATION
  Report Type: Report from Study
  Country: US (occurrence: US)
  Receive Date: 20130122
  Receipt Date: 20130122
  Transmission Date: 20140127
  Serious: Yes (Hospitalization, Other)
  Sender: FDA-Public Use
  Company Number: US-ABBOTT-13P-163-1035238-00

PATIENT
  Age: 74 None
  Sex: Male
  Weight: 90.8 kg

DRUGS (6)
  1. HUMIRA [Suspect]
     Indication: RHEUMATOID ARTHRITIS
     Dates: start: 201012, end: 201206
  2. VANCOMYCIN [Suspect]
     Indication: STAPHYLOCOCCAL INFECTION
     Dates: start: 2012, end: 2012
  3. IBUPROFEN [Concomitant]
     Indication: RHEUMATOID ARTHRITIS
  4. HYDROCODONE [Concomitant]
     Indication: PAIN
  5. TYLENOL W/CODEINE NO. 3 [Concomitant]
     Indication: PAIN
  6. MULTIVITAMIN [Concomitant]
     Indication: VITAMIN SUPPLEMENTATION

REACTIONS (12)
  - Erythema [Recovered/Resolved]
  - Groin pain [Recovered/Resolved]
  - Local swelling [Recovered/Resolved]
  - Cellulitis [Recovered/Resolved]
  - Staphylococcal infection [Recovered/Resolved]
  - Skin disorder [Recovered/Resolved]
  - Gangrene [Recovered/Resolved]
  - Renal failure [Recovered/Resolved]
  - Nephrolithiasis [Unknown]
  - Blood creatinine increased [Recovered/Resolved]
  - Iron deficiency [Unknown]
  - Vitamin D decreased [Unknown]
